FAERS Safety Report 4674680-X (Version None)
Quarter: 2005Q2

REPORT INFORMATION
  Report Type: 
  Country: None (occurrence: None)
  Receive Date: 20050526
  Receipt Date: 20050518
  Transmission Date: 20051028
  Serious: Yes (Hospitalization)
  Sender: FDA-Public Use
  Company Number: AU-GLAXOSMITHKLINE-B0382285A

PATIENT
  Sex: Male

DRUGS (6)
  1. ZYBAN [Suspect]
     Indication: DRUG USE FOR UNKNOWN INDICATION
     Route: 048
     Dates: start: 20050507, end: 20050515
  2. DIGOXIN [Concomitant]
     Dosage: 250MG PER DAY
     Route: 065
  3. ZESTRIL [Concomitant]
     Dosage: 20MG PER DAY
     Route: 065
  4. LIPEX [Concomitant]
     Dosage: 20MG PER DAY
     Route: 065
  5. ASPIRIN [Concomitant]
     Dosage: 300MG SEE DOSAGE TEXT
     Route: 065
  6. DIAFORMIN [Concomitant]
     Dosage: 500MG TWICE PER DAY
     Route: 065

REACTIONS (13)
  - ANOREXIA [None]
  - DRY MOUTH [None]
  - DRY THROAT [None]
  - EATING DISORDER [None]
  - HEADACHE [None]
  - HYPERHIDROSIS [None]
  - INFLUENZA LIKE ILLNESS [None]
  - MALAISE [None]
  - NAUSEA [None]
  - PALPITATIONS [None]
  - PYREXIA [None]
  - SOMNOLENCE [None]
  - VOMITING [None]
